FAERS Safety Report 23673618 (Version 3)
Quarter: 2024Q3

REPORT INFORMATION
  Report Type: Spontaneous
  Country: US (occurrence: US)
  Receive Date: 20240326
  Receipt Date: 20240930
  Transmission Date: 20241017
  Serious: No
  Sender: SANOFI AVENTIS
  Company Number: US-SA-SAC20240320000114

PATIENT
  Age: 71 Year
  Sex: Male

DRUGS (1)
  1. DUPIXENT [Suspect]
     Active Substance: DUPILUMAB
     Indication: Nasal polyps
     Dosage: 300 MG, QOW
     Route: 058

REACTIONS (7)
  - Balance disorder [Unknown]
  - Anosmia [Unknown]
  - Therapeutic response decreased [Unknown]
  - Pain [Recovering/Resolving]
  - Inflammation [Recovering/Resolving]
  - Musculoskeletal discomfort [Recovering/Resolving]
  - Arthralgia [Unknown]
